FAERS Safety Report 20915832 (Version 2)
Quarter: 2022Q2

REPORT INFORMATION
  Report Type: Spontaneous
  Country: US (occurrence: US)
  Receive Date: 20220604
  Receipt Date: 20220616
  Transmission Date: 20220720
  Serious: No
  Sender: FDA-Public Use
  Company Number: US-SANOFI-01120536

PATIENT
  Age: 87 Year
  Sex: Male

DRUGS (1)
  1. LANTUS SOLOSTAR [Suspect]
     Active Substance: INSULIN GLARGINE
     Indication: Type 2 diabetes mellitus
     Dosage: DRUG STRUCTURE DOSAGE : SLIDING SCALE DRUG INTERVAL DOSAGE : ONCE DAILY DRUG TREATMENT DURATION: 23R

REACTIONS (3)
  - Limb discomfort [Unknown]
  - Blood glucose increased [Unknown]
  - Cardiac operation [Unknown]
